FAERS Safety Report 7808214-5 (Version None)
Quarter: 2011Q4

REPORT INFORMATION
  Report Type: 
  Country: None (occurrence: None)
  Receive Date: 20111011
  Receipt Date: 20110823
  Transmission Date: 20120403
  Serious: Yes (Other)
  Sender: FDA-Public Use
  Company Number: PHHY2011JP74777

PATIENT
  Age: 54 Year
  Sex: Male

DRUGS (8)
  1. RASILEZ [Suspect]
     Indication: HYPERTENSION
     Dosage: UNK
     Route: 048
  2. TELMISARTAN [Concomitant]
  3. BISOPROLOL FUMARATE [Concomitant]
  4. GASLON [Concomitant]
  5. OMEPRAZOLE [Concomitant]
  6. ADALAT [Concomitant]
  7. MIGLITOL [Concomitant]
  8. AMARYL [Concomitant]

REACTIONS (1)
  - ENTEROCOLITIS HAEMORRHAGIC [None]
